FAERS Safety Report 4604094-X (Version None)
Quarter: 2005Q1

REPORT INFORMATION
  Report Type: 
  Country: None (occurrence: None)
  Receive Date: 20050309
  Receipt Date: 20050309
  Transmission Date: 20050727
  Serious: No
  Sender: FDA-Public Use
  Company Number: None

PATIENT
  Sex: Male
  Weight: 67.6 kg

DRUGS (1)
  1. PHENYTOIN [Suspect]

REACTIONS (1)
  - CONVULSION [None]
